FAERS Safety Report 8792815 (Version 2)
Quarter: 2013Q4

REPORT INFORMATION
  Report Type: Spontaneous
  Country: US (occurrence: US)
  Receive Date: 20120918
  Receipt Date: 20131031
  Transmission Date: 20140711
  Serious: No
  Sender: FDA-Public Use
  Company Number: US-009507513-2012SP014958

PATIENT
  Sex: Female
  Weight: 63.5 kg

DRUGS (2)
  1. MIRALAX [Suspect]
     Indication: CONSTIPATION
     Dosage: 17 G, QD
     Route: 048
     Dates: start: 2010
  2. MIRALAX [Suspect]
     Indication: MEDICAL OBSERVATION

REACTIONS (4)
  - Faeces soft [Unknown]
  - Frequent bowel movements [Unknown]
  - Drug ineffective [Unknown]
  - Incorrect drug administration duration [Unknown]
